APPROVED DRUG PRODUCT: TASIMELTEON
Active Ingredient: TASIMELTEON
Strength: 20MG
Dosage Form/Route: CAPSULE;ORAL
Application: A211607 | Product #001 | TE Code: AB
Applicant: APOTEX INC
Approved: Dec 20, 2022 | RLD: No | RS: No | Type: RX